FAERS Safety Report 8017108-4 (Version None)
Quarter: 2012Q1

REPORT INFORMATION
  Report Type: 
  Country: None (occurrence: None)
  Receive Date: 20120102
  Receipt Date: 20111229
  Transmission Date: 20120608
  Serious: Yes (Death, Life-Threatening, Hospitalization)
  Sender: FDA-Public Use
  Company Number: GB-ROCHE-1013929

PATIENT
  Sex: Female

DRUGS (3)
  1. ADCAL-D3 [Concomitant]
  2. LUCENTIS [Suspect]
     Indication: AGE-RELATED MACULAR DEGENERATION
     Route: 050
  3. ASPIRIN [Concomitant]
     Route: 048
     Dates: start: 20110301

REACTIONS (3)
  - PNEUMONIA [None]
  - MYOCARDIAL INFARCTION [None]
  - SEPSIS [None]
